FAERS Safety Report 4682637-8 (Version None)
Quarter: 2005Q2

REPORT INFORMATION
  Report Type: 
  Country: None (occurrence: None)
  Receive Date: 20050606
  Receipt Date: 20050603
  Transmission Date: 20051028
  Serious: Yes (Other)
  Sender: FDA-Public Use
  Company Number: US-GLAXOSMITHKLINE-A0561134A

PATIENT
  Sex: Female

DRUGS (9)
  1. AVANDIA [Suspect]
     Indication: DIABETES MELLITUS NON-INSULIN-DEPENDENT
     Dosage: 8MG PER DAY
     Route: 048
     Dates: start: 20030101
  2. FUROSEMIDE [Concomitant]
  3. METAGLIP [Concomitant]
  4. LANTUS [Concomitant]
  5. ALDACTONE [Concomitant]
  6. CARDIZEM [Concomitant]
  7. XALATAN [Concomitant]
  8. ALPHAGAN [Concomitant]
  9. HYDROCHLOROTHIAZIDE [Concomitant]

REACTIONS (10)
  - DYSPNOEA [None]
  - FLUID RETENTION [None]
  - MUSCLE SPASMS [None]
  - MUSCLE TWITCHING [None]
  - OEDEMA [None]
  - OEDEMA PERIPHERAL [None]
  - PAIN IN EXTREMITY [None]
  - PULMONARY OEDEMA [None]
  - THROMBOSIS [None]
  - WEIGHT INCREASED [None]
